FAERS Safety Report 16919045 (Version 2)
Quarter: 2019Q4

REPORT INFORMATION
  Report Type: Spontaneous
  Country: US (occurrence: US)
  Receive Date: 20191015
  Receipt Date: 20191202
  Transmission Date: 20200122
  Serious: No
  Sender: FDA-Public Use
  Company Number: US-PFIZER INC-2019438827

PATIENT

DRUGS (1)
  1. HEPARIN SODIUM. [Suspect]
     Active Substance: HEPARIN SODIUM
     Dosage: USP 10, 000 UNITS PER 10 MLS (REPORTED AS HEPARIN INJ 1000U/ML 10 ML FLIPTOP VIAL)

REACTIONS (1)
  - Drug ineffective [Unknown]
